FAERS Safety Report 10471293 (Version 2)
Quarter: 2014Q3

REPORT INFORMATION
  Report Type: Report from Study
  Country: FR (occurrence: FR)
  Receive Date: 20140923
  Receipt Date: 20140923
  Transmission Date: 20150326
  Serious: Yes (Hospitalization, Other)
  Sender: FDA-Public Use
  Company Number: FR-BAYER-2013-102136

PATIENT
  Age: 79 Year
  Sex: Male

DRUGS (2)
  1. REGORAFENIB [Suspect]
     Active Substance: REGORAFENIB
     Indication: COLORECTAL CANCER METASTATIC
     Dosage: UNK
     Dates: start: 2013, end: 2013
  2. REGORAFENIB [Suspect]
     Active Substance: REGORAFENIB
     Indication: COLORECTAL CANCER METASTATIC
     Dosage: 160 MG DAILY
     Dates: start: 20130805

REACTIONS (3)
  - Hypertension [Recovered/Resolved]
  - General physical health deterioration [Not Recovered/Not Resolved]
  - Enterococcal sepsis [Recovered/Resolved]

NARRATIVE: CASE EVENT DATE: 20130802
